FAERS Safety Report 17025990 (Version 2)
Quarter: 2019Q4

REPORT INFORMATION
  Report Type: Spontaneous
  Country: US (occurrence: US)
  Receive Date: 20191113
  Receipt Date: 20191226
  Transmission Date: 20200122
  Serious: No
  Sender: FDA-Public Use
  Company Number: US-PFIZER INC-2019488901

PATIENT
  Age: 78 Year
  Sex: Female
  Weight: 58.96 kg

DRUGS (3)
  1. ANASTROZOLE. [Suspect]
     Active Substance: ANASTROZOLE
     Dosage: 1 MG, 1X/DAY
     Route: 048
     Dates: start: 2019
  2. IBRANCE [Suspect]
     Active Substance: PALBOCICLIB
     Dosage: 125 MG, 1X/DAY
     Route: 048
     Dates: start: 2019
  3. ARIMIDEX [Suspect]
     Active Substance: ANASTROZOLE
     Dosage: UNK [ABOUT 5 MONTHS]

REACTIONS (2)
  - Pruritus [Recovering/Resolving]
  - Dry skin [Recovering/Resolving]
